FAERS Safety Report 8440559-0 (Version None)
Quarter: 2012Q2

REPORT INFORMATION
  Report Type: 
  Country: None (occurrence: None)
  Receive Date: 20120615
  Receipt Date: 20120607
  Transmission Date: 20120825
  Serious: Yes (Life-Threatening)
  Sender: FDA-Public Use
  Company Number: US-BRISTOL-MYERS SQUIBB COMPANY-16671588

PATIENT
  Sex: Female

DRUGS (1)
  1. PRAVACHOL [Suspect]

REACTIONS (2)
  - HEART RATE DECREASED [None]
  - DYSPNOEA [None]
